FAERS Safety Report 7233505-9 (Version None)
Quarter: 2011Q1

REPORT INFORMATION
  Report Type: 
  Country: None (occurrence: None)
  Receive Date: 20110113
  Receipt Date: 20110113
  Transmission Date: 20110831
  Serious: Yes (Death)
  Sender: FDA-Public Use
  Company Number: None

PATIENT
  Sex: Male
  Weight: 89 kg

DRUGS (3)
  1. PACLITAXEL [Suspect]
     Indication: MALE REPRODUCTIVE TRACT NEOPLASM
     Dosage: 170 MG/M2 Q 14 DAYS IV
     Route: 042
     Dates: start: 20101119, end: 20101207
  2. OXALIPLATIN [Suspect]
     Indication: MALE REPRODUCTIVE TRACT NEOPLASM
     Dosage: 100 MG/M2 Q 14 DAYS IV
     Route: 042
     Dates: start: 20101119, end: 20101207
  3. GEMCITABINE [Suspect]
     Indication: MALE REPRODUCTIVE TRACT NEOPLASM
     Dosage: 800 MG/M2 Q 14 DAYS IV
     Route: 042
     Dates: start: 20101119, end: 20101207

REACTIONS (8)
  - CEREBRAL HAEMORRHAGE [None]
  - GERM CELL CANCER METASTATIC [None]
  - RESPIRATORY DISTRESS [None]
  - CONVULSION [None]
  - HEMIPARESIS [None]
  - UNRESPONSIVE TO STIMULI [None]
  - CARDIAC ARREST [None]
  - NEOPLASM MALIGNANT [None]
